FAERS Safety Report 12421513 (Version 5)
Quarter: 2016Q3

REPORT INFORMATION
  Report Type: Report from Study
  Country: US (occurrence: US)
  Receive Date: 20160531
  Receipt Date: 20160909
  Transmission Date: 20161109
  Serious: Yes (Other)
  Sender: FDA-Public Use
  Company Number: US-BAYER-2016-046192

PATIENT
  Age: 71 Year
  Sex: Female
  Weight: 79.82 kg

DRUGS (6)
  1. ADEMPAS [Suspect]
     Active Substance: RIOCIGUAT
     Indication: PULMONARY HYPERTENSION
     Dosage: 0.5 MG, TID
     Route: 048
     Dates: start: 20160215
  2. BETADINE [Suspect]
     Active Substance: POVIDONE-IODINE
     Dosage: UNK
  3. ADEMPAS [Suspect]
     Active Substance: RIOCIGUAT
     Indication: PULMONARY HYPERTENSION
     Dosage: 2.5 MG, TID
     Route: 048
  4. ADEMPAS [Suspect]
     Active Substance: RIOCIGUAT
     Indication: PULMONARY HYPERTENSION
     Dosage: 2.5 MG, TID
     Route: 048
     Dates: start: 2016
  5. PREPARATION H [PHENYLEPHRINE HYDROCHLORIDE,SHARK-LIVER OIL] [Suspect]
     Active Substance: PHENYLEPHRINE\SHARK LIVER OIL
     Dosage: UNK
  6. REMODULIN [Concomitant]
     Active Substance: TREPROSTINIL

REACTIONS (22)
  - Injection site infection [None]
  - Hypoaesthesia oral [None]
  - Nausea [None]
  - Dyspepsia [None]
  - Injection site warmth [Recovered/Resolved]
  - Oxygen saturation decreased [None]
  - Bruxism [None]
  - Adverse drug reaction [None]
  - Hernia [None]
  - Gastric pH decreased [Unknown]
  - Dizziness [Unknown]
  - Ascites [None]
  - Gastrointestinal disorder [None]
  - Asthenia [None]
  - Back pain [Unknown]
  - Sinusitis [Unknown]
  - Unevaluable event [None]
  - Injection site infection [Recovered/Resolved]
  - Weight decreased [Unknown]
  - Vomiting [Unknown]
  - Drug hypersensitivity [None]
  - Migraine [None]

NARRATIVE: CASE EVENT DATE: 20160301
